FAERS Safety Report 21253802 (Version 1)
Quarter: 2022Q3

REPORT INFORMATION
  Report Type: Spontaneous
  Country: US (occurrence: None)
  Receive Date: 20220824
  Receipt Date: 20220824
  Transmission Date: 20221027
  Serious: Yes (Hospitalization)
  Sender: FDA-Public Use
  Company Number: None

PATIENT
  Age: 78 Year
  Sex: Female
  Weight: 47.2 kg

DRUGS (2)
  1. DARATUMUMAB [Suspect]
     Active Substance: DARATUMUMAB
     Indication: Plasma cell myeloma
     Dosage: FREQUENCY : WEEKLY;?
     Route: 058
     Dates: start: 20220816
  2. REVLIMID [Suspect]
     Active Substance: LENALIDOMIDE
     Indication: Plasma cell myeloma
     Dosage: FREQUENCY : DAILY;?
     Route: 048
     Dates: start: 20220816, end: 20220822

REACTIONS (12)
  - Asthenia [None]
  - Performance status decreased [None]
  - Urine output decreased [None]
  - Lethargy [None]
  - Hypophagia [None]
  - Nausea [None]
  - Vomiting [None]
  - Infection [None]
  - Urinary tract infection [None]
  - Lymphopenia [None]
  - Urinary retention [None]
  - Therapy interrupted [None]

NARRATIVE: CASE EVENT DATE: 20220823
